FAERS Safety Report 26115108 (Version 1)
Quarter: 2025Q4

REPORT INFORMATION
  Report Type: Spontaneous
  Country: CN (occurrence: CN)
  Receive Date: 20251203
  Receipt Date: 20251203
  Transmission Date: 20260118
  Serious: Yes (Other)
  Sender: MERCK SHARP & DOHME LLC
  Company Number: CN-009507513-2353943

PATIENT

DRUGS (1)
  1. BRIDION [Suspect]
     Active Substance: SUGAMMADEX SODIUM

REACTIONS (4)
  - Heart rate decreased [Unknown]
  - Loss of consciousness [Unknown]
  - Therapeutic product effect decreased [Unknown]
  - Bronchoscopy [Unknown]
